FAERS Safety Report 9891665 (Version 1)
Quarter: 2014Q1

REPORT INFORMATION
  Report Type: Spontaneous
  Country: US (occurrence: US)
  Receive Date: 20140212
  Receipt Date: 20140212
  Transmission Date: 20141002
  Serious: No
  Sender: FDA-Public Use
  Company Number: US-ROXANE LABORATORIES, INC.-2014-RO-00178RO

PATIENT
  Age: 65 Year
  Sex: Male

DRUGS (1)
  1. IPRATROPIUM BROMIDE NASAL SOLUTION, 0.06% [Suspect]
     Indication: NASAL CONGESTION
     Route: 045
     Dates: start: 201401, end: 201401

REACTIONS (2)
  - Headache [Recovered/Resolved]
  - Nasal discomfort [Recovered/Resolved]
